FAERS Safety Report 8008392 (Version 2)
Quarter: 2013Q4

REPORT INFORMATION
  Report Type: Spontaneous
  Country: FR (occurrence: FR)
  Receive Date: 20110624
  Receipt Date: 20131009
  Transmission Date: 20140711
  Serious: Yes (Other)
  Sender: FDA-Public Use
  Company Number: FR-PFIZER INC-2011134952

PATIENT
  Age: 70 Year
  Sex: Female

DRUGS (2)
  1. ZOLOFT [Suspect]
     Dosage: UNK DF, UNK
     Route: 048
  2. MEDIATOR [Suspect]
     Indication: OVERWEIGHT
     Dosage: 2 DF, UNK
     Route: 048
     Dates: end: 2010

REACTIONS (1)
  - Aortic valve incompetence [Not Recovered/Not Resolved]
